FAERS Safety Report 17302637 (Version 9)
Quarter: 2022Q3

REPORT INFORMATION
  Report Type: Report from Study
  Country: US (occurrence: US)
  Receive Date: 20200122
  Receipt Date: 20220704
  Transmission Date: 20221027
  Serious: No
  Sender: FDA-Public Use
  Company Number: NVSC2020US016115

PATIENT
  Sex: Female

DRUGS (1)
  1. COSENTYX [Suspect]
     Active Substance: SECUKINUMAB
     Indication: Psoriasis
     Dosage: UNK
     Route: 065

REACTIONS (4)
  - Fatigue [Unknown]
  - Headache [Unknown]
  - Pyrexia [Unknown]
  - Infection [Unknown]
